FAERS Safety Report 4771419-4 (Version None)
Quarter: 2005Q3

REPORT INFORMATION
  Report Type: 
  Country: None (occurrence: None)
  Receive Date: 20050915
  Receipt Date: 20050829
  Transmission Date: 20060218
  Serious: Yes (Other)
  Sender: FDA-Public Use
  Company Number: T05-USA-03253-01

PATIENT
  Age: 52 Year
  Sex: Female
  Weight: 63.5036 kg

DRUGS (6)
  1. MEMANTINE HCL [Suspect]
     Indication: COGNITIVE DETERIORATION
     Dosage: 20 MG QD PO
     Route: 048
     Dates: start: 20050726, end: 20050826
  2. TOPROL-XL [Concomitant]
  3. LISINOPRIL [Concomitant]
  4. SINGULAIR [Concomitant]
  5. SYNTHETIC ESTROGEN [Concomitant]
  6. TESTOSTERONE CREAM (TESTOSTERONE) [Concomitant]

REACTIONS (5)
  - APHASIA [None]
  - DISINHIBITION [None]
  - HEADACHE [None]
  - SENSATION OF PRESSURE [None]
  - STRESS [None]
